FAERS Safety Report 7305614-7 (Version None)
Quarter: 2011Q1

REPORT INFORMATION
  Report Type: 
  Country: None (occurrence: None)
  Receive Date: 20110222
  Receipt Date: 20110214
  Transmission Date: 20110831
  Serious: Yes (Hospitalization)
  Sender: FDA-Public Use
  Company Number: DE-ROCHE-714187

PATIENT
  Sex: Male
  Weight: 40 kg

DRUGS (10)
  1. PEMETREXED [Suspect]
     Indication: NON-SMALL CELL LUNG CANCER
     Dosage: LAST DOSE PRIOR TO SAE: 16 JUNE 2010, TEMPORARILY INTERRUPTED, FORM: NOT PROVIDED.
     Route: 042
     Dates: start: 20100616, end: 20100707
  2. FORADIL [Concomitant]
     Dates: start: 20100601
  3. BEVACIZUMAB [Suspect]
     Indication: NON-SMALL CELL LUNG CANCER
     Dosage: LAST DOSE PRIOR TO SAE: 16 JUNE 2010, TEMPORARILY INTERRUPTED, FORM: NOT PROVIDED.
     Route: 042
     Dates: start: 20100616, end: 20100707
  4. BEVACIZUMAB [Suspect]
     Dosage: PERMANAENTLY DISCONTINUED.
     Route: 042
     Dates: end: 20100716
  5. FORTECORTIN [Concomitant]
     Dates: start: 20100615, end: 20100617
  6. FOLSAN [Concomitant]
     Dates: start: 20100603
  7. SPIRIVA [Concomitant]
     Dates: start: 20080501
  8. FORTECORTIN [Concomitant]
     Dates: start: 20100706
  9. PEMETREXED [Suspect]
     Dosage: PERMANAENTLY DISCONTINUED.
     Route: 042
     Dates: end: 20100716
  10. FORTIMEL [Concomitant]
     Dosage: TOTAL DAILY DOSE: 150 GRAM X 3.
     Dates: start: 20100531

REACTIONS (2)
  - ORAL CANDIDIASIS [None]
  - CACHEXIA [None]
